FAERS Safety Report 18779304 (Version 1)
Quarter: 2021Q1

REPORT INFORMATION
  Report Type: Other
  Country: CA (occurrence: CA)
  Receive Date: 20210125
  Receipt Date: 20210125
  Transmission Date: 20210419
  Serious: Yes (Other)
  Sender: FDA-Public Use
  Company Number: CA-APOTEX-2021AP001420

PATIENT
  Age: 23 Year
  Sex: Female

DRUGS (4)
  1. QUETIAPINE. [Suspect]
     Active Substance: QUETIAPINE
     Indication: PRODUCT USED FOR UNKNOWN INDICATION
     Dosage: 75 MILLIGRAM
     Route: 065
  2. QUETIAPINE. [Suspect]
     Active Substance: QUETIAPINE
     Dosage: 25 MILLIGRAM
     Route: 065
  3. CITALOPRAM [Suspect]
     Active Substance: CITALOPRAM HYDROBROMIDE
     Indication: PRODUCT USED FOR UNKNOWN INDICATION
     Dosage: UNK
     Route: 065
  4. CITALOPRAM [Suspect]
     Active Substance: CITALOPRAM HYDROBROMIDE
     Dosage: 10 MILLIGRAM, Q.WK.
     Route: 065

REACTIONS (12)
  - Bipolar II disorder [Unknown]
  - Investigation [Unknown]
  - Irritability [Unknown]
  - Tachyphrenia [Unknown]
  - Agitation [Unknown]
  - Depression [Unknown]
  - Energy increased [Unknown]
  - Hypomania [Unknown]
  - Insomnia [Unknown]
  - Weight increased [Unknown]
  - Disease progression [Unknown]
  - Pressure of speech [Unknown]
